FAERS Safety Report 17042569 (Version 2)
Quarter: 2019Q4

REPORT INFORMATION
  Report Type: Spontaneous
  Country: JP (occurrence: JP)
  Receive Date: 20191118
  Receipt Date: 20191227
  Transmission Date: 20200122
  Serious: Yes (Life-Threatening)
  Sender: FDA-Public Use
  Company Number: JP-EISAI MEDICAL RESEARCH-EC-2019-065430

PATIENT
  Age: 78 Year
  Sex: Male

DRUGS (5)
  1. CLOPIDOGREL [Concomitant]
     Active Substance: CLOPIDOGREL BISULFATE
     Indication: VASCULAR STENOSIS
     Dosage: DOSAGE AND FREQUENCY UNKNOWN
  2. LIXIANA [Concomitant]
     Active Substance: EDOXABAN TOSYLATE
     Indication: DEEP VEIN THROMBOSIS
     Dosage: DOSAGE AND FREQUENCY UNKNOWN
     Dates: end: 20191101
  3. BAYASPIRIN [Concomitant]
     Active Substance: ASPIRIN
     Indication: VASCULAR STENOSIS
     Dosage: DOSAGE AND FREQUENCY UNKNOWN
  4. LENVIMA [Suspect]
     Active Substance: LENVATINIB
     Dosage: 4 MG; WITH INTERMITTENT BRIEF INTERRUPTIONS
     Route: 048
     Dates: start: 20180825, end: 20191101
  5. LENVIMA [Suspect]
     Active Substance: LENVATINIB
     Indication: HEPATOCELLULAR CARCINOMA
     Route: 048
     Dates: start: 20180507, end: 20180824

REACTIONS (2)
  - Gastric haemorrhage [Recovered/Resolved]
  - Gastric cancer [Unknown]

NARRATIVE: CASE EVENT DATE: 20190801
